FAERS Safety Report 12382984 (Version 1)
Quarter: 2016Q2

REPORT INFORMATION
  Report Type: Spontaneous
  Country: US (occurrence: US)
  Receive Date: 20160518
  Receipt Date: 20160518
  Transmission Date: 20160815
  Serious: Yes (Hospitalization)
  Sender: FDA-Public Use
  Company Number: US-CELGENEUS-USA-2016053515

PATIENT
  Age: 76 Year
  Sex: Female

DRUGS (7)
  1. REVLIMID [Suspect]
     Active Substance: LENALIDOMIDE
     Route: 048
     Dates: start: 20150702
  2. REVLIMID [Suspect]
     Active Substance: LENALIDOMIDE
     Indication: PLASMA CELL MYELOMA
     Route: 048
  3. REVLIMID [Suspect]
     Active Substance: LENALIDOMIDE
     Route: 048
  4. REVLIMID [Suspect]
     Active Substance: LENALIDOMIDE
     Route: 048
  5. ACETAMINOPHEN\HYDROCODONE BITARTRATE [Concomitant]
     Active Substance: ACETAMINOPHEN\HYDROCODONE BITARTRATE
     Indication: PRODUCT USED FOR UNKNOWN INDICATION
     Route: 065
  6. GABAPENTIN. [Concomitant]
     Active Substance: GABAPENTIN
     Indication: PRODUCT USED FOR UNKNOWN INDICATION
     Route: 065
  7. SOTALOL HCL [Concomitant]
     Active Substance: SOTALOL
     Indication: PRODUCT USED FOR UNKNOWN INDICATION
     Route: 065

REACTIONS (1)
  - Pneumonia [Unknown]

NARRATIVE: CASE EVENT DATE: 20160507
